FAERS Safety Report 5711667-X (Version None)
Quarter: 2008Q2

REPORT INFORMATION
  Report Type: 
  Country: None (occurrence: None)
  Receive Date: 20080416
  Receipt Date: 20080328
  Transmission Date: 20081010
  Serious: Yes (Hospitalization)
  Sender: FDA-Public Use
  Company Number: 062-C5013-07080966

PATIENT
  Age: 54 Year
  Sex: Female
  Weight: 73 kg

DRUGS (7)
  1. CC-5013 (LENALIDOMIDE) (CAPSULES) [Suspect]
     Indication: MULTIPLE MYELOMA
     Dosage: 25 MG, DAILY, ORAL
     Route: 048
     Dates: start: 20070514, end: 20070610
  2. DEXAMETHASONE TAB [Suspect]
     Indication: MULTIPLE MYELOMA
     Dosage: 40 MG, ORAL
     Route: 048
     Dates: start: 20070514, end: 20070610
  3. ACYCLOVIR [Concomitant]
  4. TRILEPTAL [Concomitant]
  5. REKAWAN (POTASSIUM CHLORIDE) [Concomitant]
  6. PANTOPRAZOLE SODIUM [Concomitant]
  7. MG VERLA (MAGNESIUM HYDROGEN ASPARTATE) (TABLETS) [Concomitant]

REACTIONS (9)
  - ACQUIRED HAEMOPHILIA [None]
  - BLOOD FIBRINOGEN INCREASED [None]
  - HAEMOGLOBIN DECREASED [None]
  - OESOPHAGITIS [None]
  - PLATELET COUNT DECREASED [None]
  - PROTHROMBIN TIME SHORTENED [None]
  - STOMATITIS [None]
  - THROMBIN TIME PROLONGED [None]
  - WHITE BLOOD CELL COUNT DECREASED [None]
